FAERS Safety Report 7825408-3 (Version None)
Quarter: 2011Q4

REPORT INFORMATION
  Report Type: 
  Country: None (occurrence: None)
  Receive Date: 20111017
  Receipt Date: 20111005
  Transmission Date: 20120403
  Serious: Yes (Other)
  Sender: FDA-Public Use
  Company Number: 2011AP002341

PATIENT
  Age: 69 Year
  Sex: Female

DRUGS (5)
  1. PACLITAXEL W/CARBOPLATIN (TAXOL W/CARBOPLATIN) [Concomitant]
  2. DOXORUBICIN HCL [Concomitant]
  3. GABAPENTIN [Suspect]
     Indication: POLYNEUROPATHY
     Dosage: 300 MG;QD ; 3600 MG;QD
  4. PACLITAXEL [Concomitant]
  5. CISPLATIN [Concomitant]

REACTIONS (2)
  - DRUG INEFFECTIVE [None]
  - FALL [None]
